FAERS Safety Report 6434899-4 (Version None)
Quarter: 2009Q4

REPORT INFORMATION
  Report Type: 
  Country: None (occurrence: None)
  Receive Date: 20091110
  Receipt Date: 20091102
  Transmission Date: 20100525
  Serious: Yes (Hospitalization)
  Sender: FDA-Public Use
  Company Number: JP-BRISTOL-MYERS SQUIBB COMPANY-14758635

PATIENT
  Age: 69 Year
  Sex: Female
  Weight: 26 kg

DRUGS (12)
  1. ERBITUX [Suspect]
     Indication: COLON CANCER
     Route: 042
     Dates: start: 20090723, end: 20090723
  2. TOPOTECAN [Concomitant]
     Indication: COLON CANCER
     Route: 042
     Dates: start: 20090723, end: 20090723
  3. POLARAMINE [Concomitant]
     Indication: PREMEDICATION
     Route: 042
     Dates: start: 20090723, end: 20090723
  4. DECADRON [Concomitant]
     Indication: PREMEDICATION
     Route: 042
     Dates: start: 20090723, end: 20090723
  5. PRIMPERAN [Concomitant]
     Indication: ANTIEMETIC SUPPORTIVE CARE
     Dosage: TABLET
     Route: 048
     Dates: start: 20090411
  6. PROMAC [Concomitant]
     Indication: GASTRIC ULCER
     Dosage: PROMAC D;TABLET
     Route: 048
     Dates: start: 20081210, end: 20090802
  7. PROMAC [Concomitant]
     Indication: GASTRITIS
     Dosage: PROMAC D;TABLET
     Route: 048
     Dates: start: 20081210, end: 20090802
  8. GASMOTIN [Concomitant]
     Indication: GASTROINTESTINAL DISORDER
     Dosage: TABLET
     Route: 048
     Dates: start: 20081210, end: 20090802
  9. AMARYL [Concomitant]
     Indication: DIABETES MELLITUS
     Dosage: TABLET
     Route: 048
     Dates: start: 20081202, end: 20090729
  10. MAGNESIUM OXIDE [Concomitant]
     Indication: CONSTIPATION
     Route: 048
     Dates: start: 20081129, end: 20090729
  11. LANSOPRAZOLE [Concomitant]
     Indication: GASTRIC ULCER
     Dosage: TABLET
     Route: 048
     Dates: start: 20081230
  12. HOCHU-EKKI-TO [Concomitant]
     Indication: DECREASED APPETITE
     Dosage: GRANULES
     Route: 048
     Dates: start: 20090717, end: 20090802

REACTIONS (3)
  - ABDOMINAL PAIN [None]
  - HYPONATRAEMIA [None]
  - MELAENA [None]
